FAERS Safety Report 18096560 (Version 1)
Quarter: 2020Q3

REPORT INFORMATION
  Report Type: Spontaneous
  Country: DK (occurrence: DK)
  Receive Date: 20200730
  Receipt Date: 20200730
  Transmission Date: 20201103
  Serious: Yes (Life-Threatening, Hospitalization, Other)
  Sender: FDA-Public Use
  Company Number: DK-BAUSCH-BL-2020-021067

PATIENT
  Age: 54 Year
  Sex: Female

DRUGS (6)
  1. CHLORDIAZEPOXIDE. [Suspect]
     Active Substance: CHLORDIAZEPOXIDE
     Indication: ALCOHOL WITHDRAWAL SYNDROME
     Route: 065
     Dates: start: 2019, end: 2019
  2. CHLORDIAZEPOXIDE. [Interacting]
     Active Substance: CHLORDIAZEPOXIDE
     Dosage: DAY 7
     Route: 065
     Dates: start: 2019, end: 2019
  3. CHLORDIAZEPOXIDE. [Interacting]
     Active Substance: CHLORDIAZEPOXIDE
     Dosage: ON DAY 11?12, TOTAL DOSE OF 300 MG
     Route: 065
     Dates: start: 2019, end: 2019
  4. CHLORDIAZEPOXIDE. [Interacting]
     Active Substance: CHLORDIAZEPOXIDE
     Dosage: DAY 6
     Route: 065
     Dates: start: 2019, end: 2019
  5. PHENOBARBITAL. [Interacting]
     Active Substance: PHENOBARBITAL
     Indication: TREMOR
     Dosage: STARTED ON DAY 7 AND STOPPED ON DAY 13 (ACCUMULATED DOSE OF 1600?MG)
     Route: 065
     Dates: start: 2019, end: 2019
  6. CHLORDIAZEPOXIDE. [Interacting]
     Active Substance: CHLORDIAZEPOXIDE
     Dosage: DAY 4?5
     Route: 065
     Dates: start: 2019, end: 2019

REACTIONS (8)
  - Pneumonia aspiration [Unknown]
  - Drug interaction [Unknown]
  - Liver function test increased [Recovering/Resolving]
  - Overdose [Unknown]
  - Drug clearance decreased [Unknown]
  - Toxicity to various agents [Unknown]
  - Sedation [Recovered/Resolved]
  - Hepatic encephalopathy [Unknown]

NARRATIVE: CASE EVENT DATE: 2019
